FAERS Safety Report 4266776-1 (Version None)
Quarter: 2004Q1

REPORT INFORMATION
  Report Type: 
  Country: None (occurrence: None)
  Receive Date: 20040108
  Receipt Date: 20021121
  Transmission Date: 20041129
  Serious: Yes (Life-Threatening)
  Sender: FDA-Public Use
  Company Number: US-BRISTOL-MYERS SQUIBB COMPANY-12119137

PATIENT
  Age: 45 Year
  Sex: Male
  Weight: 104 kg

DRUGS (11)
  1. CARDIOLITE [Suspect]
     Indication: CHEST PAIN
     Dosage: 35.8 MCI INJECTION RECEIVED 20/NOV/02 WAS UNEVENTFUL.
     Route: 051
     Dates: start: 20021121, end: 20021121
  2. CARDURA [Concomitant]
     Dosage: DOSE TAKEN IN AM
  3. DILANTIN [Concomitant]
     Indication: CONVULSION
     Dosage: DOSE TAKEN IN AM AND PM
  4. NORVASC [Concomitant]
     Dosage: DOSE TAKEN IN PM
  5. TRAZODONE HCL [Concomitant]
     Dosage: DOSE TAKEN IN PM
  6. NEXIUM [Concomitant]
     Dosage: DOSE TAKEN IN AM
  7. ASPIRIN [Concomitant]
     Dosage: DOSE TAKEN IN AM
  8. ATROVENT [Concomitant]
     Route: 055
  9. ALBUTEROL [Concomitant]
     Route: 055
  10. SEREVENT [Concomitant]
     Route: 055
  11. FLOVENT [Concomitant]
     Route: 055

REACTIONS (4)
  - DYSGEUSIA [None]
  - DYSPNOEA [None]
  - HYPERSENSITIVITY [None]
  - THROAT IRRITATION [None]
